FAERS Safety Report 24827866 (Version 1)
Quarter: 2025Q1

REPORT INFORMATION
  Report Type: Spontaneous
  Country: US (occurrence: US)
  Receive Date: 20250109
  Receipt Date: 20250109
  Transmission Date: 20250409
  Serious: Yes (Hospitalization)
  Sender: ABBVIE
  Company Number: US-ABBVIE-6074064

PATIENT
  Sex: Female

DRUGS (1)
  1. ELAHERE [Suspect]
     Active Substance: MIRVETUXIMAB SORAVTANSINE-GYNX
     Indication: Product used for unknown indication
     Route: 042

REACTIONS (5)
  - Nervous system disorder [Unknown]
  - Asthenia [Unknown]
  - Gait inability [Unknown]
  - CSF lymphocyte count increased [Unknown]
  - Dysarthria [Unknown]

NARRATIVE: CASE EVENT DATE: 20250101
